FAERS Safety Report 24660560 (Version 1)
Quarter: 2024Q4

REPORT INFORMATION
  Report Type: Spontaneous
  Country: US (occurrence: None)
  Receive Date: 20241124
  Receipt Date: 20241124
  Transmission Date: 20250115
  Serious: Yes (Hospitalization, Other)
  Sender: Public
  Company Number: None

PATIENT
  Sex: Female

DRUGS (1)
  1. HERBALS\TETRAHYDROCANNABIPHOROL [Suspect]
     Active Substance: HERBALS\TETRAHYDROCANNABIPHOROL
     Indication: Sleep disorder
     Dosage: ORAL
     Route: 048
     Dates: start: 20241119, end: 20241119

REACTIONS (6)
  - Dysstasia [None]
  - Speech disorder [None]
  - Loss of consciousness [None]
  - Vomiting [None]
  - Retching [None]
  - Feeling abnormal [None]

NARRATIVE: CASE EVENT DATE: 20241120
